FAERS Safety Report 19484645 (Version 2)
Quarter: 2021Q3

REPORT INFORMATION
  Report Type: Spontaneous
  Country: US (occurrence: US)
  Receive Date: 20210701
  Receipt Date: 20210714
  Transmission Date: 20211014
  Serious: No
  Sender: FDA-Public Use
  Company Number: US-ABBVIE-21K-163-3969973-00

PATIENT
  Age: 8 Year
  Sex: Female
  Weight: 22.7 kg

DRUGS (1)
  1. LUPRON DEPOT?PED [Suspect]
     Active Substance: LEUPROLIDE ACETATE
     Indication: PRECOCIOUS PUBERTY
     Route: 030
     Dates: start: 2019

REACTIONS (5)
  - Abnormal uterine bleeding [Recovered/Resolved]
  - Injection site pain [Recovered/Resolved]
  - Precocious puberty [Unknown]
  - Device use error [Recovered/Resolved]
  - Fatigue [Recovered/Resolved]

NARRATIVE: CASE EVENT DATE: 202106
